FAERS Safety Report 23756093 (Version 1)
Quarter: 2024Q2

REPORT INFORMATION
  Report Type: Spontaneous
  Country: FR (occurrence: FR)
  Receive Date: 20240418
  Receipt Date: 20240418
  Transmission Date: 20240716
  Serious: Yes (Other)
  Sender: FDA-Public Use
  Company Number: FR-CELLTRION INC.-2024FR008923

PATIENT

DRUGS (6)
  1. TRASTUZUMAB [Suspect]
     Active Substance: TRASTUZUMAB
     Indication: Breast neoplasm
     Dosage: 240 MG
     Route: 042
     Dates: start: 20210205, end: 20210528
  2. EMEND [Suspect]
     Active Substance: APREPITANT
     Indication: Premedication
     Dosage: 1 DF
     Route: 048
     Dates: start: 20210326, end: 20210528
  3. ONDANSETRON [Suspect]
     Active Substance: ONDANSETRON
     Indication: Premedication
     Dosage: 1 DF, 3 WEEK
     Route: 048
     Dates: start: 20210326, end: 20210528
  4. ELIQUIS [Suspect]
     Active Substance: APIXABAN
     Indication: Thrombosis prophylaxis
     Route: 048
  5. MORPHINE SULFATE [Concomitant]
     Active Substance: MORPHINE SULFATE
     Dosage: 1 DF
     Route: 048
     Dates: start: 2010
  6. SKENAN [Concomitant]
     Active Substance: MORPHINE SULFATE
     Dosage: 20 MG, 1 DAY
     Route: 048
     Dates: start: 2010

REACTIONS (2)
  - Keratitis [Not Recovered/Not Resolved]
  - Intentional product use issue [Unknown]

NARRATIVE: CASE EVENT DATE: 20210531
